FAERS Safety Report 6715813-0 (Version None)
Quarter: 2010Q2

REPORT INFORMATION
  Report Type: 
  Country: None (occurrence: None)
  Receive Date: 20100507
  Receipt Date: 20100428
  Transmission Date: 20101027
  Serious: Yes (Other)
  Sender: FDA-Public Use
  Company Number: GXKR2010GB04750

PATIENT
  Age: 77 Year
  Sex: Male

DRUGS (3)
  1. BETAMETHASONE (NGX) [Suspect]
     Indication: PLASMACYTOSIS
     Route: 065
  2. METHOTREXATE [Suspect]
     Indication: PLASMACYTOSIS
     Route: 065
  3. TACROLIMUS (NGX) [Suspect]
     Indication: PLASMACYTOSIS
     Route: 065

REACTIONS (3)
  - METASTASIS [None]
  - RADICAL NECK DISSECTION [None]
  - SQUAMOUS CELL CARCINOMA [None]
